FAERS Safety Report 5706365-2 (Version None)
Quarter: 2008Q2

REPORT INFORMATION
  Report Type: 
  Country: None (occurrence: None)
  Receive Date: 20080414
  Receipt Date: 20080331
  Transmission Date: 20081010
  Serious: Yes (Other)
  Sender: FDA-Public Use
  Company Number: 2008S1000279

PATIENT
  Age: 37 Year
  Sex: Female
  Weight: 63.5036 kg

DRUGS (4)
  1. AZASAN [Suspect]
     Indication: CROHN'S DISEASE
     Dosage: 50 MG;QD;PO
     Route: 048
     Dates: start: 20050101, end: 20080301
  2. PREDNISONE [Concomitant]
  3. ASACOL [Concomitant]
  4. IMODIUM [Concomitant]

REACTIONS (7)
  - DRUG EXPOSURE DURING PREGNANCY [None]
  - DYSPHAGIA [None]
  - DYSPNOEA [None]
  - ERYTHEMA [None]
  - EXPIRED DRUG ADMINISTERED [None]
  - PETECHIAE [None]
  - PREGNANCY [None]
